FAERS Safety Report 6946256-2 (Version None)
Quarter: 2010Q3

REPORT INFORMATION
  Report Type: 
  Country: None (occurrence: None)
  Receive Date: 20100824
  Receipt Date: 20100811
  Transmission Date: 20110219
  Serious: Yes (Hospitalization)
  Sender: FDA-Public Use
  Company Number: 20100384

PATIENT
  Age: 39 Year
  Sex: Female

DRUGS (8)
  1. VENOFER (IRON SUCROSE INJECTION-VIFOR) (IRON SUCROSE INJECTION) 20 MG/ [Suspect]
     Dosage: 200 MG WEEKLY INTRAVENOUS
     Route: 042
     Dates: start: 20100111, end: 20100222
  2. OXALIPLATIN [Suspect]
     Indication: CHEMOTHERAPY
  3. AVASTIN [Concomitant]
  4. ERBITUX [Concomitant]
  5. FLUOROURACIL [Concomitant]
  6. FOLFIRI (IRINOTECAN, LEUCOVORIN, FLUOROURACIL) [Concomitant]
  7. FOLFOX (OXALIPLATIN,FLUOROURACIL, LEUCOVORIN) [Concomitant]
  8. IRINOTECAN HCL [Concomitant]

REACTIONS (4)
  - MALIGNANT NEOPLASM PROGRESSION [None]
  - MALIGNANT PERITONEAL NEOPLASM [None]
  - NEUROPATHY PERIPHERAL [None]
  - PARAESTHESIA [None]
